FAERS Safety Report 20512280 (Version 1)
Quarter: 2022Q1

REPORT INFORMATION
  Report Type: Spontaneous
  Country: US (occurrence: None)
  Receive Date: 20220224
  Receipt Date: 20220224
  Transmission Date: 20220423
  Serious: No
  Sender: FDA-Public Use
  Company Number: None

PATIENT
  Sex: Male

DRUGS (1)
  1. KISQALI FEMARA CO-PACK [Suspect]
     Active Substance: LETROZOLE\RIBOCICLIB
     Indication: Breast cancer
     Dosage: OTHER QUANTITY : 200MG/2.5MG;?FREQUENCY : DAILY; FOR 21 DAYS TAKE 1 TABLET BY MOUTH 1 TIME A DAY FOR
     Route: 048
     Dates: start: 202109, end: 20220223

REACTIONS (1)
  - Drug ineffective [None]
